FAERS Safety Report 24174864 (Version 2)
Quarter: 2024Q3

REPORT INFORMATION
  Report Type: Report from Study
  Country: US (occurrence: US)
  Receive Date: 20240805
  Receipt Date: 20240815
  Transmission Date: 20241017
  Serious: Yes (Hospitalization, Other)
  Sender: BAYER
  Company Number: US-BAYER-2024A112900

PATIENT
  Age: 88 Year
  Sex: Male

DRUGS (1)
  1. NUBEQA [Suspect]
     Active Substance: DAROLUTAMIDE
     Dosage: UNK

REACTIONS (2)
  - Hip fracture [Unknown]
  - Hospitalisation [None]

NARRATIVE: CASE EVENT DATE: 20240724
